FAERS Safety Report 16416392 (Version 1)
Quarter: 2019Q2

REPORT INFORMATION
  Report Type: Spontaneous
  Country: US (occurrence: US)
  Receive Date: 20190611
  Receipt Date: 20190611
  Transmission Date: 20190711
  Serious: No
  Sender: FDA-Public Use
  Company Number: US-GALDERMA-US18035282

PATIENT
  Age: 21 Year
  Sex: Female

DRUGS (5)
  1. PROACTIV MD DAILY OIL CONTROL SPF 30 [Suspect]
     Active Substance: AVOBENZONE\OCTISALATE\OCTOCRYLENE
     Indication: ALLERGY TO ANIMAL
     Route: 061
     Dates: start: 20180801, end: 20180810
  2. PROACTIV GENTLE FORMULA CLARIFYING TONER [Concomitant]
     Indication: ALLERGY TO ANIMAL
     Route: 061
     Dates: start: 20180801, end: 20180810
  3. PROACTIV SKIN PURIFYING MASK [Concomitant]
     Active Substance: SULFUR
     Indication: ALLERGY TO ANIMAL
     Route: 061
     Dates: start: 20180801, end: 20180810
  4. PROACTIV MD DEEP CLEANSING FACE WASH [Concomitant]
     Active Substance: COSMETICS
     Indication: ALLERGY TO ANIMAL
     Route: 061
     Dates: start: 20180801, end: 20180810
  5. PROACTIV MD ADAPALENE ACNE TREATMENT [Suspect]
     Active Substance: ADAPALENE
     Indication: ALLERGY TO ANIMAL
     Dosage: 0.1%
     Route: 061
     Dates: start: 20180801, end: 20180810

REACTIONS (5)
  - Skin warm [Recovered/Resolved]
  - Skin irritation [Recovered/Resolved]
  - Skin fragility [Recovered/Resolved]
  - Acne [Recovered/Resolved]
  - Dermatitis [Recovered/Resolved]

NARRATIVE: CASE EVENT DATE: 20180805
